FAERS Safety Report 11909665 (Version 1)
Quarter: 2016Q1

REPORT INFORMATION
  Report Type: Spontaneous
  Country: US (occurrence: None)
  Receive Date: 20160108
  Receipt Date: 20160108
  Transmission Date: 20160526
  Serious: Yes (Other)
  Sender: FDA-Public Use
  Company Number: 002035284A

PATIENT
  Sex: Female

DRUGS (2)
  1. PROACTIV REPAIRING TREATMENT [Suspect]
     Active Substance: BENZOYL PEROXIDE
     Indication: ACNE
     Dates: start: 20151111, end: 20151203
  2. PROACTIV RENEWING CLEANSER [Suspect]
     Active Substance: BENZOYL PEROXIDE
     Indication: ACNE
     Dates: start: 20151111, end: 20151203

REACTIONS (6)
  - Erythema [None]
  - Swelling [None]
  - Acne [None]
  - Inflammation [None]
  - Dermatitis contact [None]
  - Cellulitis [None]

NARRATIVE: CASE EVENT DATE: 20151204
